FAERS Safety Report 10072829 (Version 1)
Quarter: 2014Q2

REPORT INFORMATION
  Report Type: Spontaneous
  Country: PL (occurrence: PL)
  Receive Date: 20140411
  Receipt Date: 20140411
  Transmission Date: 20141212
  Serious: Yes (Other)
  Sender: FDA-Public Use
  Company Number: PL-UCBSA-116908

PATIENT
  Age: 17 Year
  Sex: Female

DRUGS (3)
  1. VIMPAT [Suspect]
     Indication: EPILEPSY
  2. VALPROATE [Concomitant]
     Indication: EPILEPSY
  3. OXCARBAZEPINE [Concomitant]
     Indication: EPILEPSY

REACTIONS (1)
  - Myoclonic epilepsy [Unknown]
